FAERS Safety Report 7816983-3 (Version None)
Quarter: 2011Q4

REPORT INFORMATION
  Report Type: 
  Country: None (occurrence: None)
  Receive Date: 20111017
  Receipt Date: 20111013
  Transmission Date: 20120403
  Serious: Yes (Death, Hospitalization)
  Sender: FDA-Public Use
  Company Number: US-BRISTOL-MYERS SQUIBB COMPANY-14211585

PATIENT
  Age: 70 Year
  Sex: Male
  Weight: 101 kg

DRUGS (2)
  1. CISPLATIN [Suspect]
     Indication: HEAD AND NECK CANCER
     Dosage: LAST ADMINISTERED: 19-MAY-2008, ALSO STRATED ON 31MAR2008,LAST DOSE ON 28APR2008
     Route: 042
     Dates: start: 20080318
  2. ERBITUX [Suspect]
     Indication: HEAD AND NECK CANCER
     Dosage: LAST ADMINISTERED: 19-MAY-2008
     Route: 042
     Dates: start: 20080331, end: 20080519

REACTIONS (16)
  - SKIN INFECTION [None]
  - HYPOALBUMINAEMIA [None]
  - ATRIAL FIBRILLATION [None]
  - ASPARTATE AMINOTRANSFERASE INCREASED [None]
  - BLOOD BILIRUBIN INCREASED [None]
  - BACTERAEMIA [None]
  - ALANINE AMINOTRANSFERASE INCREASED [None]
  - MULTI-ORGAN FAILURE [None]
  - BLOOD ALKALINE PHOSPHATASE INCREASED [None]
  - ASPIRATION [None]
  - RENAL FAILURE ACUTE [None]
  - WHITE BLOOD CELL COUNT DECREASED [None]
  - HAEMOGLOBIN DECREASED [None]
  - HYPOXIA [None]
  - HYPERGLYCAEMIA [None]
  - DEHYDRATION [None]
